FAERS Safety Report 12625007 (Version 1)
Quarter: 2016Q3

REPORT INFORMATION
  Report Type: Spontaneous
  Country: US (occurrence: None)
  Receive Date: 20160804
  Receipt Date: 20160804
  Transmission Date: 20161109
  Serious: Yes (Life-Threatening, Hospitalization)
  Sender: FDA-Public Use
  Company Number: None

PATIENT
  Age: 60 Year
  Sex: Female
  Weight: 50 kg

DRUGS (2)
  1. DOXORUBICIN HCL LIPOSOME, 40MG/M2 [Suspect]
     Active Substance: DOXORUBICIN HYDROCHLORIDE
     Indication: OVARIAN CANCER
     Dosage: 40 MG/KG EVERY 28 DAYS INTRAVENOUS DRIP
     Route: 041
     Dates: start: 20160616, end: 20160616
  2. AVASTIN [Concomitant]
     Active Substance: BEVACIZUMAB

REACTIONS (16)
  - Fatigue [None]
  - Pancreatic duct dilatation [None]
  - Nausea [None]
  - Stomatitis [None]
  - Neutropenia [None]
  - Pyrexia [None]
  - Muscle spasms [None]
  - Diarrhoea [None]
  - Headache [None]
  - Hydrocholecystis [None]
  - Mucosal inflammation [None]
  - Dermatitis bullous [None]
  - Biliary dilatation [None]
  - Myalgia [None]
  - Febrile neutropenia [None]
  - Rash [None]

NARRATIVE: CASE EVENT DATE: 20160616
